FAERS Safety Report 7992899-7 (Version None)
Quarter: 2011Q4

REPORT INFORMATION
  Report Type: 
  Country: None (occurrence: None)
  Receive Date: 20111219
  Receipt Date: 20111012
  Transmission Date: 20120403
  Serious: No
  Sender: FDA-Public Use
  Company Number: US-ASTRAZENECA-2011SE61357

PATIENT
  Age: 89 Year
  Sex: Female

DRUGS (4)
  1. ANTIBIOTICS [Concomitant]
  2. CRESTOR [Suspect]
     Indication: BLOOD CHOLESTEROL ABNORMAL
     Route: 048
  3. ASPIRIN [Concomitant]
  4. THYROID MEDICATION [Concomitant]

REACTIONS (1)
  - SWELLING FACE [None]
